FAERS Safety Report 12282262 (Version 2)
Quarter: 2016Q2

REPORT INFORMATION
  Report Type: Report from Study
  Country: CA (occurrence: CA)
  Receive Date: 20160419
  Receipt Date: 20160421
  Transmission Date: 20160815
  Serious: Yes (Hospitalization)
  Sender: FDA-Public Use
  Company Number: CA-JNJFOC-20160416643

PATIENT
  Age: 88 Year
  Sex: Female
  Weight: 64 kg

DRUGS (24)
  1. FUROSEMIDE. [Concomitant]
     Active Substance: FUROSEMIDE
     Route: 065
  2. KETOCONAZOLE. [Concomitant]
     Active Substance: KETOCONAZOLE
     Route: 065
  3. NORVASC [Concomitant]
     Active Substance: AMLODIPINE BESYLATE
     Route: 065
  4. VITAMIN B12 [Concomitant]
     Active Substance: CYANOCOBALAMIN
     Route: 065
  5. GLUCOSAMINE SULFATE [Concomitant]
     Active Substance: GLUCOSAMINE SULFATE
     Route: 065
  6. MIRABEGRON [Concomitant]
     Active Substance: MIRABEGRON
     Route: 065
  7. CYCLOSPORINE. [Concomitant]
     Active Substance: CYCLOSPORINE
     Route: 065
  8. TYLENOL [Concomitant]
     Active Substance: ACETAMINOPHEN
     Route: 065
  9. FERROUS GLUCONATE [Concomitant]
     Active Substance: FERROUS GLUCONATE
     Route: 065
  10. FOLIC ACID. [Concomitant]
     Active Substance: FOLIC ACID
     Route: 065
  11. FUCIDINE [Concomitant]
     Active Substance: FUSIDIC ACID
     Route: 065
  12. HYDROCORTISONE. [Concomitant]
     Active Substance: HYDROCORTISONE
     Route: 065
  13. ZINC OXIDE. [Concomitant]
     Active Substance: ZINC OXIDE
     Route: 065
  14. HYPROMELLOSE [Concomitant]
     Active Substance: HYPROMELLOSES
     Route: 065
  15. OXAZEPAM. [Concomitant]
     Active Substance: OXAZEPAM
     Route: 065
  16. TENORMIN [Concomitant]
     Active Substance: ATENOLOL
     Route: 065
  17. HYALURONIC ACID [Concomitant]
     Active Substance: HYALURONIC ACID
     Route: 065
  18. VITAMIN D3 [Concomitant]
     Active Substance: CHOLECALCIFEROL
     Route: 065
  19. REMICADE [Suspect]
     Active Substance: INFLIXIMAB
     Indication: RHEUMATOID ARTHRITIS
     Route: 042
     Dates: start: 2011
  20. PLAVIX [Concomitant]
     Active Substance: CLOPIDOGREL BISULFATE
     Route: 065
  21. CANESTEN [Concomitant]
     Active Substance: CLOTRIMAZOLE
     Route: 065
  22. TRAVOPROST [Concomitant]
     Active Substance: TRAVOPROST
     Route: 065
  23. METHYLCELLULOSE [Concomitant]
     Active Substance: METHYLCELLULOSES
     Route: 065
  24. PANTOLOC [Concomitant]
     Active Substance: PANTOPRAZOLE SODIUM
     Route: 065

REACTIONS (2)
  - Asthenia [Recovered/Resolved]
  - Pyrexia [Recovered/Resolved]

NARRATIVE: CASE EVENT DATE: 20160218
